FAERS Safety Report 5375892-2 (Version None)
Quarter: 2007Q3

REPORT INFORMATION
  Report Type: 
  Country: None (occurrence: None)
  Receive Date: 20070702
  Receipt Date: 20070622
  Transmission Date: 20080115
  Serious: Yes (Other)
  Sender: FDA-Public Use
  Company Number: PHEH2007US06397

PATIENT
  Age: 59 Year
  Sex: Female

DRUGS (1)
  1. ZELNORM [Suspect]
     Indication: IRRITABLE BOWEL SYNDROME
     Dosage: 2 Q AM
     Route: 048
     Dates: start: 20050830, end: 20070426

REACTIONS (2)
  - CAROTID ARTERY DISEASE [None]
  - COORDINATION ABNORMAL [None]
